FAERS Safety Report 11895326 (Version 4)
Quarter: 2016Q1

REPORT INFORMATION
  Report Type: Report from Study
  Country: ES (occurrence: ES)
  Receive Date: 20160107
  Receipt Date: 20160224
  Transmission Date: 20160526
  Serious: Yes (Death, Disabling, Other)
  Sender: FDA-Public Use
  Company Number: ES-PFIZER INC-2016001306

PATIENT
  Age: 46 Year
  Sex: Female
  Weight: 62 kg

DRUGS (3)
  1. FASLODEX [Concomitant]
     Active Substance: FULVESTRANT
     Indication: BREAST CANCER
     Dosage: 500 MG, UNK (EVERY 15 DAYS)
     Route: 058
     Dates: start: 20110614
  2. IBRANCE [Suspect]
     Active Substance: PALBOCICLIB
     Indication: BREAST CANCER METASTATIC
     Dosage: 75 MG, DAILY
     Route: 048
     Dates: start: 20150717, end: 20151030
  3. PREDNISONE. [Concomitant]
     Active Substance: PREDNISONE
     Indication: BREAST CANCER
     Dosage: 20 MG, DAILY
     Route: 048
     Dates: start: 20140830

REACTIONS (6)
  - Breast cancer metastatic [Fatal]
  - Spinal cord compression [Not Recovered/Not Resolved]
  - Disease progression [Fatal]
  - Bone marrow toxicity [Not Recovered/Not Resolved]
  - Spinal fracture [Not Recovered/Not Resolved]
  - Bone disorder [Not Recovered/Not Resolved]

NARRATIVE: CASE EVENT DATE: 20150730
